FAERS Safety Report 24151336 (Version 1)
Quarter: 2024Q3

REPORT INFORMATION
  Report Type: Spontaneous
  Country: US (occurrence: None)
  Receive Date: 20240729
  Receipt Date: 20240729
  Transmission Date: 20241017
  Serious: Yes (Hospitalization)
  Sender: Public
  Company Number: None

PATIENT
  Sex: Female

DRUGS (3)
  1. AMBRISENTAN [Suspect]
     Active Substance: AMBRISENTAN
     Indication: Pulmonary arterial hypertension
     Dosage: FREQUENCY : DAILY;?
     Route: 048
     Dates: start: 202406
  2. Tadalafi [Concomitant]
  3. C-TREPROSTINIL 0.2MG/ML [Concomitant]

REACTIONS (7)
  - Nausea [None]
  - Diarrhoea [None]
  - Headache [None]
  - Chest pain [None]
  - Abdominal pain upper [None]
  - Dyspnoea [None]
  - Dyspnoea exertional [None]
